FAERS Safety Report 6936374-7 (Version None)
Quarter: 2010Q3

REPORT INFORMATION
  Report Type: 
  Country: None (occurrence: None)
  Receive Date: 20100823
  Receipt Date: 20100816
  Transmission Date: 20110219
  Serious: Yes (Death)
  Sender: FDA-Public Use
  Company Number: GXKR2010RO09212

PATIENT
  Age: 70 Year
  Sex: Male

DRUGS (5)
  1. FLUOROURACIL [Suspect]
     Indication: COLORECTAL CANCER
     Dosage: UNK
     Dates: start: 20100715
  2. FOLINIC ACID (NGX) [Suspect]
     Indication: COLORECTAL CANCER
     Dosage: UNK
     Dates: start: 20100715
  3. OXALIPLATIN [Suspect]
     Indication: COLORECTAL CANCER
     Dosage: UNK
     Dates: start: 20100715
  4. MONOCLONAL ANTIBODIES [Concomitant]
     Indication: COLORECTAL CANCER
  5. LOPERAMIDE [Concomitant]
     Dosage: 2 MG, UNK
     Route: 048
     Dates: start: 20100720

REACTIONS (4)
  - ANXIETY [None]
  - CYANOSIS [None]
  - DYSPNOEA [None]
  - PULMONARY OEDEMA [None]
